FAERS Safety Report 13020392 (Version 5)
Quarter: 2017Q1

REPORT INFORMATION
  Report Type: Spontaneous
  Country: US (occurrence: US)
  Receive Date: 20161212
  Receipt Date: 20170306
  Transmission Date: 20170428
  Serious: Yes (Death, Hospitalization, Other)
  Sender: FDA-Public Use
  Company Number: US-009507513-1612USA004709

PATIENT
  Sex: Male
  Weight: 60.77 kg

DRUGS (1)
  1. KEYTRUDA [Suspect]
     Active Substance: PEMBROLIZUMAB
     Indication: METASTATIC SQUAMOUS CELL CARCINOMA
     Dosage: ONE DOSE
     Route: 042
     Dates: start: 20160624, end: 20160624

REACTIONS (2)
  - Metastatic squamous cell carcinoma [Fatal]
  - Adverse event [Unknown]

NARRATIVE: CASE EVENT DATE: 2016
